FAERS Safety Report 8592429 (Version 3)
Quarter: 2020Q3

REPORT INFORMATION
  Report Type: Report from Study
  Country: GB (occurrence: GB)
  Receive Date: 20120601
  Receipt Date: 20120730
  Transmission Date: 20201105
  Serious: Yes (Hospitalization)
  Sender: FDA-Public Use
  Company Number: GB-ASTRAZENECA-2012SE33313

PATIENT
  Age: 24618 Day
  Sex: Male
  Weight: 60.5 kg

DRUGS (4)
  1. VANDETANIB. [Suspect]
     Active Substance: VANDETANIB
     Route: 048
     Dates: start: 20120427
  2. AMLODIPINE [Concomitant]
     Active Substance: AMLODIPINE BESYLATE
     Indication: HYPERTENSION
     Route: 048
     Dates: start: 20120510
  3. SELUMETINIB. [Suspect]
     Active Substance: SELUMETINIB
     Indication: NON-SMALL CELL LUNG CANCER STAGE IIIB
     Route: 048
     Dates: start: 20120508
  4. VANDETANIB. [Suspect]
     Active Substance: VANDETANIB
     Indication: NON-SMALL CELL LUNG CANCER STAGE IIIB
     Route: 048
     Dates: start: 20120423, end: 20120426

REACTIONS (2)
  - Acute kidney injury [Recovered/Resolved]
  - Dehydration [Recovered/Resolved]

NARRATIVE: CASE EVENT DATE: 20120509
